FAERS Safety Report 7555692-5 (Version None)
Quarter: 2011Q2

REPORT INFORMATION
  Report Type: 
  Country: None (occurrence: None)
  Receive Date: 20110617
  Receipt Date: 20110614
  Transmission Date: 20111010
  Serious: Yes (Other)
  Sender: FDA-Public Use
  Company Number: GB-MERCK-1104GBR00046

PATIENT
  Age: 66 Year
  Sex: Female

DRUGS (4)
  1. TRUSOPT [Suspect]
     Indication: INTRAOCULAR PRESSURE INCREASED
     Dosage: PRESERVATIVE FREE
     Route: 047
     Dates: start: 20110119, end: 20110518
  2. BIMATOPROST [Concomitant]
     Indication: INTRAOCULAR PRESSURE INCREASED
     Dosage: IN THE NIGHT
     Route: 065
     Dates: start: 20051019
  3. CELLULOSE, MICROCRYSTALLINE [Concomitant]
     Indication: KERATOPATHY
     Route: 065
     Dates: start: 20101215
  4. DEXAMETHASONE [Concomitant]
     Indication: IRITIS
     Dosage: PRESERVATIVE FREE/ SIX TIMES DAILY
     Route: 065
     Dates: start: 20101229

REACTIONS (1)
  - EYELID EXFOLIATION [None]
